FAERS Safety Report 5865774-1 (Version None)
Quarter: 2008Q3

REPORT INFORMATION
  Report Type: 
  Country: None (occurrence: None)
  Receive Date: 20080829
  Receipt Date: 20080822
  Transmission Date: 20090109
  Serious: Yes (Hospitalization, Other)
  Sender: FDA-Public Use
  Company Number: PHRM2007FR02657

PATIENT
  Sex: Male

DRUGS (7)
  1. EXJADE [Suspect]
     Indication: HAEMOCHROMATOSIS
     Dosage: 20 MG/KG/DAY
     Route: 048
     Dates: start: 20070201, end: 20071009
  2. EXJADE [Suspect]
     Dosage: 250 MG/DAY
     Route: 048
     Dates: start: 20071201
  3. EXJADE [Suspect]
     Dosage: 375 MG/DAY
     Route: 048
     Dates: start: 20080101
  4. CELEBREX [Suspect]
     Indication: TENDONITIS
     Dosage: UNK
     Dates: start: 20070912, end: 20070915
  5. PREVISCAN [Concomitant]
     Indication: PULMONARY EMBOLISM
     Dosage: UNK
     Dates: start: 20000101
  6. ORACILLINE [Concomitant]
     Indication: SPLENECTOMY
     Dosage: UNK
     Dates: start: 19980101
  7. HYDREA [Concomitant]
     Indication: THROMBOCYTHAEMIA
     Dosage: UNK
     Dates: start: 19990101

REACTIONS (6)
  - ABDOMINAL PAIN [None]
  - HEPATIC FAILURE [None]
  - NAUSEA [None]
  - PROTHROMBIN LEVEL DECREASED [None]
  - TRANSAMINASES INCREASED [None]
  - VOMITING [None]
